FAERS Safety Report 9204706 (Version 1)
Quarter: 2013Q1

REPORT INFORMATION
  Report Type: Spontaneous
  Country: US (occurrence: None)
  Receive Date: 20130329
  Receipt Date: 20130329
  Transmission Date: 20140127
  Serious: Yes (Other)
  Sender: FDA-Public Use
  Company Number: IPC201303-000096

PATIENT
  Age: 48 Year
  Sex: Female

DRUGS (5)
  1. HYDROXYCHLOROQUINE SULFATE [Suspect]
  2. PREDNISONE [Suspect]
     Dosage: INCREASED TO 40 MG/DAY
     Dates: start: 200405
  3. METHOTREXATE [Suspect]
     Dosage: 22.5 MG/WEEK - STOPPED
  4. MINOCYCLINE [Suspect]
  5. THALIDOMIDE [Suspect]
     Dates: start: 200405

REACTIONS (7)
  - Diarrhoea [None]
  - Abdominal pain [None]
  - Abdominal discomfort [None]
  - Fatigue [None]
  - Leukopenia [None]
  - Liver function test abnormal [None]
  - Neuropathy peripheral [None]
